FAERS Safety Report 16677108 (Version 1)
Quarter: 2019Q3

REPORT INFORMATION
  Report Type: Spontaneous
  Country: US (occurrence: US)
  Receive Date: 20190621
  Receipt Date: 20190621
  Transmission Date: 20191004
  Serious: Yes (Other)
  Sender: FDA-Public Use
  Company Number: None

PATIENT
  Sex: Male

DRUGS (1)
  1. EQUATE HAIR REGROWTH TREATMENT FOR MEN [Suspect]
     Active Substance: MINOXIDIL

REACTIONS (6)
  - Dizziness [None]
  - Vertigo [None]
  - Balance disorder [None]
  - Chest pain [None]
  - Heart rate increased [None]
  - Product use issue [None]
